FAERS Safety Report 22180104 (Version 2)
Quarter: 2023Q2

REPORT INFORMATION
  Report Type: Report from Study
  Country: CA (occurrence: CA)
  Receive Date: 20230406
  Receipt Date: 20230417
  Transmission Date: 20230722
  Serious: Yes (Other)
  Sender: FDA-Public Use
  Company Number: CA-002147023-NVSC2023CA061855

PATIENT
  Age: 23 Year
  Sex: Male

DRUGS (9)
  1. DEXAMETHASONE [Suspect]
     Active Substance: DEXAMETHASONE
     Indication: Immune thrombocytopenia
     Dosage: UNK
     Route: 065
  2. DEXAMETHASONE [Suspect]
     Active Substance: DEXAMETHASONE
     Dosage: 4-DAY COURSES OF DEXAMETHASONE
     Route: 065
     Dates: start: 201801
  3. DEXAMETHASONE [Suspect]
     Active Substance: DEXAMETHASONE
     Dosage: UNK
     Route: 065
     Dates: start: 201902
  4. DEXAMETHASONE [Suspect]
     Active Substance: DEXAMETHASONE
     Dosage: UNK (REQUIRED TWO COURSES)
     Route: 065
     Dates: start: 202011
  5. PREDNISONE [Suspect]
     Active Substance: PREDNISONE
     Indication: Product used for unknown indication
     Dosage: 70 MG, QD
     Route: 065
  6. PREDNISONE [Suspect]
     Active Substance: PREDNISONE
     Dosage: 70 MG, FOR 3 WEEKS (STARTED ON 09 MAR)
     Route: 065
  7. PREDNISONE [Suspect]
     Active Substance: PREDNISONE
     Dosage: UNK
     Route: 065
     Dates: start: 201507
  8. PREDNISONE [Suspect]
     Active Substance: PREDNISONE
     Dosage: UNK
     Route: 065
     Dates: start: 201702
  9. PREDNISONE [Suspect]
     Active Substance: PREDNISONE
     Dosage: 60 MG, FOR 9 WEEKS
     Route: 065
     Dates: start: 202211, end: 202302

REACTIONS (3)
  - Immune thrombocytopenia [Unknown]
  - Disease progression [Unknown]
  - Drug ineffective for unapproved indication [Unknown]
